FAERS Safety Report 6194982-8 (Version None)
Quarter: 2009Q2

REPORT INFORMATION
  Report Type: 
  Country: None (occurrence: None)
  Receive Date: 20090519
  Receipt Date: 20090511
  Transmission Date: 20091009
  Serious: Yes (Death)
  Sender: FDA-Public Use
  Company Number: A0760916A

PATIENT
  Age: 80 Year
  Sex: Male
  Weight: 99.5 kg

DRUGS (3)
  1. AVODART [Suspect]
     Indication: DRUG USE FOR UNKNOWN INDICATION
     Route: 065
     Dates: start: 20081018
  2. ASPIRIN [Concomitant]
  3. CARDURA [Concomitant]

REACTIONS (3)
  - CARDIAC FAILURE [None]
  - CARDIOMEGALY [None]
  - DEATH [None]
